FAERS Safety Report 4616501-7 (Version None)
Quarter: 2005Q1

REPORT INFORMATION
  Report Type: 
  Country: None (occurrence: None)
  Receive Date: 20050318
  Receipt Date: 20050302
  Transmission Date: 20050727
  Serious: Yes (Death)
  Sender: FDA-Public Use
  Company Number: L04-USA-07403-55

PATIENT
  Age: 42 Year
  Sex: Male

DRUGS (3)
  1. TIAZAC [Suspect]
     Dosage: 15 TABLET ONCE PO
     Route: 048
  2. ALPRAZOLAM [Suspect]
  3. ETHANOL [Suspect]

REACTIONS (12)
  - ALCOHOL USE [None]
  - BLOOD GLUCOSE INCREASED [None]
  - BLOOD PRESSURE DECREASED [None]
  - BRADYCARDIA [None]
  - CARDIAC ARREST [None]
  - COMPLETED SUICIDE [None]
  - INTENTIONAL MISUSE [None]
  - LIVER FUNCTION TEST ABNORMAL [None]
  - MULTI-ORGAN FAILURE [None]
  - MYDRIASIS [None]
  - PUPIL FIXED [None]
  - RESPIRATORY RATE INCREASED [None]
